FAERS Safety Report 12212302 (Version 1)
Quarter: 2016Q1

REPORT INFORMATION
  Report Type: Spontaneous
  Country: US (occurrence: US)
  Receive Date: 20160325
  Receipt Date: 20160325
  Transmission Date: 20160526
  Serious: Yes (Other)
  Sender: FDA-Public Use
  Company Number: US-DEP_02542_2015

PATIENT
  Sex: Female

DRUGS (2)
  1. GRALISE [Suspect]
     Active Substance: GABAPENTIN
     Dosage: SAMPLE PACK, DF
  2. GRALISE [Suspect]
     Active Substance: GABAPENTIN
     Indication: PRODUCT USED FOR UNKNOWN INDICATION
     Dosage: SAMPLE PACK

REACTIONS (1)
  - Depression [Unknown]
